FAERS Safety Report 20828705 (Version 1)
Quarter: 2022Q2

REPORT INFORMATION
  Report Type: Spontaneous
  Country: ES (occurrence: ES)
  Receive Date: 20220513
  Receipt Date: 20220513
  Transmission Date: 20220721
  Serious: Yes (Death, Hospitalization)
  Sender: FDA-Public Use
  Company Number: None

PATIENT
  Age: 91 Year
  Sex: Male

DRUGS (2)
  1. METFORMIN [Interacting]
     Active Substance: METFORMIN HYDROCHLORIDE
     Indication: Diabetes mellitus
     Dosage: 850 MG, Q8H
     Route: 048
     Dates: start: 20150423, end: 20220118
  2. OMNIPAQUE [Interacting]
     Active Substance: IOHEXOL
     Indication: Computerised tomogram neck
     Dosage: UNK
     Route: 042
     Dates: start: 20220113, end: 20220113

REACTIONS (2)
  - Acute kidney injury [Fatal]
  - Lactic acidosis [Fatal]

NARRATIVE: CASE EVENT DATE: 20220118
